FAERS Safety Report 7134301-3 (Version None)
Quarter: 2010Q4

REPORT INFORMATION
  Report Type: 
  Country: None (occurrence: None)
  Receive Date: 20101117
  Receipt Date: 20101102
  Transmission Date: 20110411
  Serious: Yes (Life-Threatening, Hospitalization)
  Sender: FDA-Public Use
  Company Number: AUR-APL-2010-02738

PATIENT
  Age: 67 Year
  Sex: Male
  Weight: 85 kg

DRUGS (5)
  1. GLUCOPHAGE [Suspect]
     Indication: TYPE 2 DIABETES MELLITUS
     Dosage: 850MG - BID - ORAL
     Route: 048
     Dates: end: 20100928
  2. LASIX [Suspect]
     Indication: LEFT VENTRICULAR FAILURE
     Dosage: 40MG - BID - ORAL
     Dates: start: 20100920
  3. DICLOFENAC DISPERS [Suspect]
     Indication: PAIN
     Dosage: 3X75MG - ORAL
     Route: 048
     Dates: start: 20100920, end: 20100928
  4. AMLODIPINE [Concomitant]
  5. LISINOPRIL [Concomitant]

REACTIONS (3)
  - CONVULSION [None]
  - LACTIC ACIDOSIS [None]
  - RENAL FAILURE ACUTE [None]
